FAERS Safety Report 8588430-8 (Version None)
Quarter: 2012Q3

REPORT INFORMATION
  Report Type: 
  Country: None (occurrence: None)
  Receive Date: 20120813
  Receipt Date: 20120806
  Transmission Date: 20120928
  Serious: No
  Sender: FDA-Public Use
  Company Number: US-PFIZER INC-2012174257

PATIENT
  Age: 49 Year
  Sex: Female

DRUGS (3)
  1. ERYTHROMYCIN [Suspect]
     Dosage: UNK
  2. TETRACYCLINE HCL [Suspect]
     Dosage: UNK
  3. TRAMADOL HYDROCHLORIDE [Suspect]
     Dosage: UNK

REACTIONS (1)
  - NO ADVERSE EVENT [None]
